FAERS Safety Report 4452262-2 (Version None)
Quarter: 2004Q3

REPORT INFORMATION
  Report Type: 
  Country: None (occurrence: None)
  Receive Date: 20040917
  Receipt Date: 20040909
  Transmission Date: 20050211
  Serious: Yes (Hospitalization)
  Sender: FDA-Public Use
  Company Number: AU-AMGEN-US090683

PATIENT
  Sex: Male

DRUGS (9)
  1. NEULASTA [Suspect]
     Indication: CHEMOTHERAPY
     Dates: start: 20040310
  2. CYTARABINE [Suspect]
     Dates: start: 20040505
  3. ETOPOSIDE [Suspect]
  4. GEMZAR [Suspect]
     Dates: start: 20040302
  5. IFOSFAMIDE [Suspect]
  6. VINORELBINE TARTRATE [Suspect]
     Dates: start: 20040302
  7. PREDNISOLONE [Concomitant]
  8. LOSEC [Concomitant]
  9. NAPROXEN [Concomitant]

REACTIONS (6)
  - CELLULITIS [None]
  - EPISTAXIS [None]
  - FEBRILE NEUTROPENIA [None]
  - SEPSIS [None]
  - SYNCOPE [None]
  - WHITE BLOOD CELL COUNT DECREASED [None]
